FAERS Safety Report 23591521 (Version 1)
Quarter: 2024Q1

REPORT INFORMATION
  Report Type: Spontaneous
  Country: US (occurrence: None)
  Receive Date: 20240301
  Receipt Date: 20240301
  Transmission Date: 20240410
  Serious: Yes (Other)
  Sender: FDA-Public Use
  Company Number: None

PATIENT
  Age: 41 Year
  Sex: Male
  Weight: 63.9 kg

DRUGS (7)
  1. CYCLOSPORINE [Suspect]
     Active Substance: CYCLOSPORINE
     Indication: Dry eye
     Dosage: TWICE A DAY OPHTHALMIC
     Route: 047
  2. METHYLPHENIDATE [Suspect]
     Active Substance: METHYLPHENIDATE
     Indication: Attention deficit hyperactivity disorder
  3. XANAX [Concomitant]
     Active Substance: ALPRAZOLAM
  4. TUMERIC WITH GINGER BLACK PEPPER [Concomitant]
  5. VITA GLOBE [Concomitant]
  6. VITAFUSION [Concomitant]
  7. MEN^S MULTIVITAMINS [Concomitant]

REACTIONS (3)
  - Ocular discomfort [None]
  - Iris disorder [None]
  - Therapy cessation [None]

NARRATIVE: CASE EVENT DATE: 20240301
